FAERS Safety Report 8875562 (Version 1)
Quarter: 2012Q4

REPORT INFORMATION
  Report Type: 
  Country: FR (occurrence: FR)
  Receive Date: 20121029
  Receipt Date: 20121029
  Transmission Date: 20130627
  Serious: Yes (Hospitalization)
  Sender: FDA-Public Use
  Company Number: FR-ROCHE-1148706

PATIENT
  Age: 62 Year
  Sex: Male

DRUGS (10)
  1. MABTHERA [Suspect]
     Indication: LYMPHOMA
     Route: 042
     Dates: start: 20120925, end: 20120925
  2. CISPLATINE [Suspect]
     Indication: LYMPHOMA
     Route: 042
     Dates: start: 20120923, end: 20120923
  3. ONDANSETRON [Suspect]
     Indication: VOMITING
     Route: 042
     Dates: start: 20120923, end: 20120924
  4. DEXAMETHASONE [Suspect]
     Indication: VOMITING
     Route: 042
     Dates: start: 20120923, end: 20120925
  5. CYTARABINE [Suspect]
     Indication: LYMPHOMA
     Route: 042
     Dates: start: 20120924, end: 20120925
  6. METHYLPREDNISOLONE [Suspect]
     Indication: VOMITING
     Route: 042
     Dates: start: 20120922
  7. INEXIUM [Concomitant]
  8. DAFALGAN [Concomitant]
  9. ZELITREX [Concomitant]
     Route: 065
     Dates: start: 20120825
  10. BACTRIM [Concomitant]
     Route: 065
     Dates: start: 20120825

REACTIONS (1)
  - Hiccups [Recovered/Resolved]
